FAERS Safety Report 5618336-5 (Version None)
Quarter: 2008Q1

REPORT INFORMATION
  Report Type: 
  Country: None (occurrence: None)
  Receive Date: 20080114
  Receipt Date: 20070326
  Transmission Date: 20080703
  Serious: Yes (Disabling)
  Sender: FDA-Public Use
  Company Number: A03200702381

PATIENT
  Age: 82 Year
  Sex: Female

DRUGS (6)
  1. PLAVIX [Suspect]
     Indication: STENT PLACEMENT
     Dosage: 75 MG, QD, ORAL
     Route: 048
     Dates: start: 20060201, end: 20060601
  2. TELMISARTAN [Concomitant]
  3. ATENOLOL [Concomitant]
  4. LEVOTHYROXINE SODIUM [Concomitant]
  5. PREDNISONE [Concomitant]
  6. ACETYLSALICYLIC CID [Concomitant]

REACTIONS (2)
  - ARTHRALGIA [None]
  - OEDEMA PERIPHERAL [None]
